FAERS Safety Report 19407676 (Version 1)
Quarter: 2021Q2

REPORT INFORMATION
  Report Type: Report from Study
  Country: None (occurrence: BR)
  Receive Date: 20210612
  Receipt Date: 20210612
  Transmission Date: 20210717
  Serious: Yes (Disabling, Other)
  Sender: FDA-Public Use
  Company Number: BR-ABBVIE-21K-020-3943356-00

PATIENT
  Age: 52 Year
  Sex: Female
  Weight: 71 kg

DRUGS (2)
  1. HUMIRA [Suspect]
     Active Substance: ADALIMUMAB
     Dosage: UNSPECIFIED DOSE
     Route: 058
     Dates: start: 202105
  2. HUMIRA [Suspect]
     Active Substance: ADALIMUMAB
     Indication: ANKYLOSING SPONDYLITIS
     Dosage: UNSPECIFIED DOSE
     Route: 058
     Dates: end: 202012

REACTIONS (7)
  - Angina pectoris [Unknown]
  - Coronary angioplasty [Unknown]
  - Arterial occlusive disease [Unknown]
  - Mobility decreased [Recovered/Resolved]
  - Insomnia [Unknown]
  - Gait inability [Unknown]
  - Pain [Recovering/Resolving]

NARRATIVE: CASE EVENT DATE: 202102
